FAERS Safety Report 8090513-6 (Version None)
Quarter: 2012Q1

REPORT INFORMATION
  Report Type: 
  Country: None (occurrence: None)
  Receive Date: 20120129
  Receipt Date: 20111121
  Transmission Date: 20120608
  Serious: No
  Sender: FDA-Public Use
  Company Number: US-ABBOTT-11P-163-0871124-00

PATIENT
  Age: 21 Year
  Sex: Male

DRUGS (3)
  1. LIALDA [Concomitant]
     Indication: COLITIS ULCERATIVE
     Dates: start: 20110101
  2. HUMIRA [Suspect]
     Dates: start: 20111125
  3. HUMIRA [Suspect]
     Indication: COLITIS ULCERATIVE
     Dates: start: 20110909, end: 20111111

REACTIONS (4)
  - RASH [None]
  - DIARRHOEA [None]
  - HAEMATOCHEZIA [None]
  - DEFAECATION URGENCY [None]
